FAERS Safety Report 19364408 (Version 1)
Quarter: 2021Q2

REPORT INFORMATION
  Report Type: Spontaneous
  Country: FR (occurrence: FR)
  Receive Date: 20210602
  Receipt Date: 20210602
  Transmission Date: 20210717
  Serious: Yes (Hospitalization)
  Sender: FDA-Public Use
  Company Number: FR-TAKEDA-2021TUS033220

PATIENT
  Age: 59 Year
  Sex: Female
  Weight: 45 kg

DRUGS (23)
  1. DEXAMETHASONE. [Suspect]
     Active Substance: DEXAMETHASONE
     Indication: PLASMA CELL MYELOMA
     Dosage: 20 MILLIGRAM
     Route: 048
     Dates: start: 20130218, end: 20130930
  2. PRAZEPAM [Concomitant]
     Active Substance: PRAZEPAM
     Indication: FIBROMYALGIA
     Dosage: 10 MILLIGRAM, QD
     Route: 048
  3. PHLOROGLUCINOL/TRIMETHYLPHLOROGLUCINOL ARROW [Concomitant]
     Active Substance: PHLOROGLUCINOL\1,3,5-TRIMETHOXYBENZENE
     Indication: FIBROSING COLONOPATHY
     Dosage: UNK
     Route: 048
     Dates: start: 2003
  4. LAMOTRIGINE. [Concomitant]
     Active Substance: LAMOTRIGINE
     Indication: NEUROPATHY PERIPHERAL
     Dosage: 25 MILLIGRAM, QD
     Route: 048
     Dates: start: 20140624
  5. DULOXETINE. [Concomitant]
     Active Substance: DULOXETINE
     Indication: NEUROPATHY PERIPHERAL
  6. EDUCTYL [Concomitant]
     Active Substance: POTASSIUM BITARTRATE\SODIUM BICARBONATE
     Indication: CONSTIPATION
     Dosage: 1 UNK
     Route: 054
     Dates: start: 20130325
  7. POTASSIUM BITARTRATE. [Concomitant]
     Active Substance: POTASSIUM BITARTRATE
     Indication: PRODUCT USED FOR UNKNOWN INDICATION
     Dosage: UNK
     Route: 065
  8. VENLAFAXINE [Concomitant]
     Active Substance: VENLAFAXINE HYDROCHLORIDE
     Indication: PRODUCT USED FOR UNKNOWN INDICATION
     Dosage: 75 MILLIGRAM, QD
     Route: 048
     Dates: start: 20130709
  9. PARACETAMOL [Concomitant]
     Active Substance: ACETAMINOPHEN
     Indication: FIBROMYALGIA
     Dosage: 2000 MILLIGRAM
     Route: 048
     Dates: start: 20131202
  10. REVLIMID [Suspect]
     Active Substance: LENALIDOMIDE
     Indication: PLASMA CELL MYELOMA
     Dosage: 25 MILLIGRAM
     Route: 048
     Dates: start: 20130218, end: 20140727
  11. LAMOTRIGINE. [Concomitant]
     Active Substance: LAMOTRIGINE
     Indication: HEADACHE
  12. DIOSMECTITE [Concomitant]
     Active Substance: MONTMORILLONITE
     Indication: DIARRHOEA
     Dosage: 3 GRAM
     Route: 048
     Dates: start: 20140106
  13. CHOLECALCIFEROL [Concomitant]
     Active Substance: CHOLECALCIFEROL
     Indication: VITAMIN D DEFICIENCY
     Dosage: UNK
     Route: 048
     Dates: start: 200301
  14. TRAMADOL. [Concomitant]
     Active Substance: TRAMADOL
     Indication: FIBROMYALGIA
     Dosage: 400 MILLIGRAM, QD
     Route: 065
     Dates: start: 2003, end: 20130331
  15. TRAMADOL. [Concomitant]
     Active Substance: TRAMADOL
     Dosage: 400 MILLIGRAM
     Route: 048
     Dates: start: 20140412
  16. MACROGOL [Concomitant]
     Active Substance: POLYETHYLENE GLYCOLS
     Indication: CONSTIPATION
     Dosage: 5.9 GRAM
     Route: 048
     Dates: start: 2003
  17. TRIMEBUTINE [Concomitant]
     Active Substance: TRIMEBUTINE
     Indication: FIBROSING COLONOPATHY
     Dosage: 200 MILLIGRAM
     Route: 048
     Dates: start: 2003
  18. IXAZOMIB [Suspect]
     Active Substance: IXAZOMIB
     Indication: PLASMA CELL MYELOMA
     Dosage: 4 MILLIGRAM
     Route: 048
     Dates: start: 20130218, end: 20140217
  19. DULOXETINE. [Concomitant]
     Active Substance: DULOXETINE
     Indication: MIXED ANXIETY AND DEPRESSIVE DISORDER
     Dosage: 60 MILLIGRAM, QD
     Route: 048
  20. SENOKOT [Concomitant]
     Active Substance: SENNOSIDES
     Indication: CONSTIPATION
     Route: 048
  21. KETOCONAZOLE. [Concomitant]
     Active Substance: KETOCONAZOLE
     Indication: PRODUCT USED FOR UNKNOWN INDICATION
     Dosage: UNK
     Route: 061
     Dates: start: 20131007
  22. ESOMEPRAZOLE. [Concomitant]
     Active Substance: ESOMEPRAZOLE MAGNESIUM
     Indication: GASTRITIS
     Dosage: 40 MILLIGRAM, QD
     Route: 048
     Dates: start: 2003
  23. MAGNESIUM + B6 [Concomitant]
     Indication: PROPHYLAXIS
     Dosage: UNK
     Route: 048
     Dates: start: 20130415

REACTIONS (1)
  - Large intestine infection [Recovered/Resolved]

NARRATIVE: CASE EVENT DATE: 20140725
